FAERS Safety Report 14244502 (Version 2)
Quarter: 2017Q4

REPORT INFORMATION
  Report Type: Spontaneous
  Country: AR (occurrence: AR)
  Receive Date: 20171201
  Receipt Date: 20171208
  Transmission Date: 20180321
  Serious: Yes (Death, Other)
  Sender: FDA-Public Use
  Company Number: AR-009507513-1712ARG000218

PATIENT
  Age: 47 Year
  Sex: Male

DRUGS (1)
  1. KEYTRUDA [Suspect]
     Active Substance: PEMBROLIZUMAB
     Indication: LUNG ADENOCARCINOMA STAGE III
     Dosage: UNK
     Dates: start: 20170301, end: 20170504

REACTIONS (5)
  - Respiratory failure [Unknown]
  - Pneumonia [Fatal]
  - Adverse event [Unknown]
  - Pneumonitis [Fatal]
  - Enterobacter infection [Unknown]

NARRATIVE: CASE EVENT DATE: 2017
